FAERS Safety Report 4314180-X (Version None)
Quarter: 2004Q1

REPORT INFORMATION
  Report Type: 
  Country: None (occurrence: None)
  Receive Date: 20040308
  Receipt Date: 20040308
  Transmission Date: 20041129
  Serious: Yes (Death)
  Sender: FDA-Public Use
  Company Number: None

PATIENT
  Age: 73 Year
  Sex: Male
  Weight: 67 kg

DRUGS (22)
  1. ZOSYN [Suspect]
     Indication: LUNG INFECTION PSEUDOMONAL
     Dosage: 4.5 GM EVERY 8 HO INTRAVENOUS
     Route: 042
     Dates: start: 20040208, end: 20040212
  2. CIPRO [Suspect]
     Indication: LUNG INFECTION PSEUDOMONAL
     Dosage: 400 MG DAILY INTRAVENOUS
     Route: 042
     Dates: start: 20040208, end: 20040209
  3. CLAFORAN [Concomitant]
  4. ZITHROMAX [Concomitant]
  5. CARDIZEM [Concomitant]
  6. COMBIVENT [Concomitant]
  7. FESO4 [Concomitant]
  8. PROTONIX [Concomitant]
  9. CENTRUM [Concomitant]
  10. FLOMAX [Concomitant]
  11. EPOGEN [Concomitant]
  12. LOVENOX [Concomitant]
  13. DOPAMINE HCL [Concomitant]
  14. ZETIA [Concomitant]
  15. DIGOXIN [Concomitant]
  16. VANCOMYCIN [Concomitant]
  17. PLAVIX [Concomitant]
  18. RIFAMPIN [Concomitant]
  19. ALTACE [Concomitant]
  20. CORDARONE [Concomitant]
  21. MEGACE [Concomitant]
  22. GENTAMICIN [Concomitant]

REACTIONS (4)
  - ORGAN FAILURE [None]
  - SEPSIS [None]
  - STEVENS-JOHNSON SYNDROME [None]
  - THERAPY NON-RESPONDER [None]
